FAERS Safety Report 7050414-9 (Version None)
Quarter: 2010Q4

REPORT INFORMATION
  Report Type: 
  Country: None (occurrence: None)
  Receive Date: 20101013
  Receipt Date: 20100929
  Transmission Date: 20110411
  Serious: Yes (Other)
  Sender: FDA-Public Use
  Company Number: NGX_00026_2010

PATIENT
  Sex: Male
  Weight: 89 kg

DRUGS (1)
  1. QUTENZA [Suspect]
     Indication: NEUROPATHY PERIPHERAL
     Dosage: (2 DF 1X, [PLASTERS APPLIED TO RIGHT FOOT] TOPICAL)
     Route: 061
     Dates: start: 20100713

REACTIONS (3)
  - APPLICATION SITE ERYTHEMA [None]
  - APPLICATION SITE VESICLES [None]
  - PAIN [None]
